FAERS Safety Report 6530967-7 (Version None)
Quarter: 2010Q1

REPORT INFORMATION
  Report Type: 
  Country: None (occurrence: None)
  Receive Date: 20100108
  Receipt Date: 20090901
  Transmission Date: 20100710
  Serious: No
  Sender: FDA-Public Use
  Company Number: A0799172A

PATIENT
  Age: 59 Year
  Sex: Female

DRUGS (1)
  1. LOVAZA [Suspect]
     Route: 048
     Dates: end: 20090714

REACTIONS (2)
  - ABNORMAL FAECES [None]
  - DRUG INEFFECTIVE [None]
